FAERS Safety Report 8888617 (Version 1)
Quarter: 2012Q4

REPORT INFORMATION
  Report Type: 
  Country: US (occurrence: US)
  Receive Date: 20121106
  Receipt Date: 20121106
  Transmission Date: 20130627
  Serious: Yes (Other)
  Sender: FDA-Public Use
  Company Number: US-ROCHE-1138053

PATIENT
  Sex: Female

DRUGS (2)
  1. NUTROPIN [Suspect]
     Indication: HYPOTHALAMO-PITUITARY DISORDER
     Dosage: drug indication: OTHER DISORDERS OF THE PITUITARY AND OTHER SYNDROMES OF DIENCEPHALOHYPOPHYSEAL ORIG
     Route: 065
  2. NUTROPIN [Suspect]
     Indication: EMPTY SELLA SYNDROME

REACTIONS (2)
  - Loss of consciousness [Unknown]
  - Head injury [Unknown]
